FAERS Safety Report 4610546-9 (Version None)
Quarter: 2005Q2

REPORT INFORMATION
  Report Type: 
  Country: None (occurrence: None)
  Receive Date: 20050228
  Receipt Date: 20041101
  Transmission Date: 20051028
  Serious: No
  Sender: FDA-Public Use
  Company Number: 239132

PATIENT
  Age: 82 Year
  Sex: Female
  Weight: 54.4 kg

DRUGS (4)
  1. NOVOLOG MIX 70/30 [Suspect]
     Indication: INSULIN-REQUIRING TYPE II DIABETES MELLITUS
     Dosage: 48 IU, QD, SUBCUTANEOUS
     Route: 058
  2. LIPITOR [Concomitant]
  3. ARICEPT [Concomitant]
  4. ECOTRIN (ACETYLSALICYLIC ACID) [Concomitant]

REACTIONS (1)
  - HYPOGLYCAEMIA [None]
